FAERS Safety Report 7667813-4 (Version None)
Quarter: 2011Q3

REPORT INFORMATION
  Report Type: 
  Country: None (occurrence: None)
  Receive Date: 20110806
  Receipt Date: 20110412
  Transmission Date: 20111222
  Serious: No
  Sender: FDA-Public Use
  Company Number: US-ABBOTT-11P-163-0718155-00

PATIENT
  Sex: Male
  Weight: 75.364 kg

DRUGS (4)
  1. SIMVASTATIN [Concomitant]
     Indication: PRODUCT USED FOR UNKNOWN INDICATION
  2. TRIFLEX [Concomitant]
     Indication: PRODUCT USED FOR UNKNOWN INDICATION
  3. NIASPAN [Suspect]
     Indication: LOW DENSITY LIPOPROTEIN DECREASED
     Dosage: 1 TABLET AT BEDTIME FOR 7 DAYS
     Dates: start: 20110404
  4. NIASPAN [Suspect]
     Dosage: 2 TABLETS AT BEDTIME
     Dates: start: 20110411

REACTIONS (1)
  - FLUSHING [None]
